FAERS Safety Report 9417855 (Version 3)
Quarter: 2013Q3

REPORT INFORMATION
  Report Type: Report from Study
  Country: US (occurrence: US)
  Receive Date: 20130724
  Receipt Date: 20130905
  Transmission Date: 20140515
  Serious: Yes (Hospitalization)
  Sender: FDA-Public Use
  Company Number: US-UCBSA-092560

PATIENT
  Age: 9 Year
  Sex: Male
  Weight: 37.1 kg

DRUGS (1)
  1. CERTOLIZUMAB PEGOL [Suspect]
     Indication: JUVENILE IDIOPATHIC ARTHRITIS
     Dosage: NO OF DOSES RECEIVED: 11
     Route: 058
     Dates: start: 20130201

REACTIONS (4)
  - Abdominal pain [Recovered/Resolved]
  - Vomiting [Recovered/Resolved]
  - Haematuria [Recovered/Resolved]
  - Hypercreatinaemia [Recovered/Resolved]
